FAERS Safety Report 9233973 (Version 1)
Quarter: 2013Q2

REPORT INFORMATION
  Report Type: Spontaneous
  Country: US (occurrence: US)
  Receive Date: 20130416
  Receipt Date: 20130416
  Transmission Date: 20140414
  Serious: No
  Sender: FDA-Public Use
  Company Number: US-BANPHARM-20120515

PATIENT
  Age: 76 Year
  Sex: Male
  Weight: 99.79 kg

DRUGS (4)
  1. ALEVE LIQUID GELS 220MG [Suspect]
     Dosage: 2 DF, PRN,
     Route: 048
     Dates: start: 201212
  2. 81MG BAYER ASPIRIN [Concomitant]
  3. GENERIC ZOCOR [Concomitant]
  4. ATENOLOL [Concomitant]

REACTIONS (1)
  - Drug effect incomplete [Unknown]
